FAERS Safety Report 7118497-5 (Version None)
Quarter: 2010Q4

REPORT INFORMATION
  Report Type: 
  Country: None (occurrence: None)
  Receive Date: 20101123
  Receipt Date: 20091019
  Transmission Date: 20110411
  Serious: No
  Sender: FDA-Public Use
  Company Number: US-MYLANLABS-2009S1018298

PATIENT
  Age: 43 Year
  Sex: Male

DRUGS (1)
  1. CLONAZEPAM [Suspect]
     Route: 048

REACTIONS (9)
  - ABDOMINAL DISCOMFORT [None]
  - DIPLOPIA [None]
  - DIZZINESS [None]
  - DRY MOUTH [None]
  - DYSPNOEA [None]
  - HEART RATE INCREASED [None]
  - NERVOUSNESS [None]
  - TREMOR [None]
  - VISION BLURRED [None]
